FAERS Safety Report 15235221 (Version 1)
Quarter: 2018Q3

REPORT INFORMATION
  Report Type: Spontaneous
  Country: US (occurrence: US)
  Receive Date: 20180803
  Receipt Date: 20180803
  Transmission Date: 20181010
  Serious: No
  Sender: FDA-Public Use
  Company Number: US-LUPIN PHARMACEUTICALS INC.-2017-03763

PATIENT
  Age: 24 Year
  Sex: Female
  Weight: 66 kg

DRUGS (1)
  1. LEVETIRACETAM EXTENDED RELEASE TABLET USP, 500 MG [Suspect]
     Active Substance: LEVETIRACETAM
     Indication: SEIZURE
     Dosage: 1 DF, BID
     Route: 048
     Dates: start: 20170620

REACTIONS (1)
  - Medication residue present [Not Recovered/Not Resolved]

NARRATIVE: CASE EVENT DATE: 20170702
